FAERS Safety Report 5263377-3 (Version None)
Quarter: 2007Q1

REPORT INFORMATION
  Report Type: 
  Country: None (occurrence: None)
  Receive Date: 20070313
  Receipt Date: 20070305
  Transmission Date: 20070707
  Serious: Yes (Hospitalization)
  Sender: FDA-Public Use
  Company Number: CH-ELI_LILLY_AND_COMPANY-CH200703000997

PATIENT
  Age: 56 Year
  Sex: Female

DRUGS (7)
  1. ZYPREXA [Suspect]
     Dosage: 5 MG, DAILY (1/D)
     Route: 048
     Dates: start: 20061209, end: 20061211
  2. ZYPREXA [Suspect]
     Dosage: 20 MG, DAILY (1/D)
     Route: 048
     Dates: start: 20061212, end: 20061224
  3. ZYPREXA [Suspect]
     Dosage: 10 MG, DAILY (1/D)
     Route: 048
     Dates: start: 20061225, end: 20061226
  4. HALDOL [Concomitant]
     Dosage: 10 MG, DAILY (1/D)
     Route: 048
     Dates: start: 20061225, end: 20061226
  5. HALDOL [Concomitant]
     Dosage: 5 MG, DAILY (1/D)
     Route: 048
     Dates: start: 20061227, end: 20061228
  6. TEMESTA [Concomitant]
     Dosage: 7.5 MG, DAILY (1/D)
     Route: 048
     Dates: start: 20061222, end: 20061226
  7. TEMESTA [Concomitant]
     Dosage: 3 MG, DAILY (1/D)
     Route: 048
     Dates: start: 20061227, end: 20061230

REACTIONS (4)
  - BACK PAIN [None]
  - FALL [None]
  - PLEUROTHOTONUS [None]
  - URINARY RETENTION [None]
